FAERS Safety Report 20856649 (Version 3)
Quarter: 2022Q4

REPORT INFORMATION
  Report Type: Spontaneous
  Country: US (occurrence: US)
  Receive Date: 20220520
  Receipt Date: 20221128
  Transmission Date: 20230113
  Serious: No
  Sender: FDA-Public Use
  Company Number: US-SA-SAC20220512001587

PATIENT
  Age: 19 Year
  Sex: Male

DRUGS (2)
  1. FABRAZYME [Suspect]
     Active Substance: AGALSIDASE BETA
     Indication: Fabry^s disease
     Dosage: 50 MG, QOW
     Route: 042
     Dates: start: 20210922
  2. FABRAZYME [Suspect]
     Active Substance: AGALSIDASE BETA
     Dosage: 20 MG, QOW
     Route: 042

REACTIONS (2)
  - Pain in extremity [Not Recovered/Not Resolved]
  - Arthralgia [Not Recovered/Not Resolved]

NARRATIVE: CASE EVENT DATE: 20220419
